FAERS Safety Report 7578911-8 (Version None)
Quarter: 2011Q2

REPORT INFORMATION
  Report Type: 
  Country: None (occurrence: None)
  Receive Date: 20110628
  Receipt Date: 20110615
  Transmission Date: 20111010
  Serious: Yes (Death)
  Sender: FDA-Public Use
  Company Number: US-MYLANLABS-2011S1012773

PATIENT
  Age: 19 Year
  Sex: Male

DRUGS (1)
  1. LAMOTRIGINE [Suspect]
     Indication: INTENTIONAL OVERDOSE
     Dosage: WITNESSED INGESTION OF 4G
     Route: 048

REACTIONS (8)
  - ATRIOVENTRICULAR BLOCK COMPLETE [None]
  - RESPIRATORY ACIDOSIS [None]
  - DISSEMINATED INTRAVASCULAR COAGULATION [None]
  - RHABDOMYOLYSIS [None]
  - INTENTIONAL OVERDOSE [None]
  - RENAL FAILURE ACUTE [None]
  - GRAND MAL CONVULSION [None]
  - METABOLIC ACIDOSIS [None]
